FAERS Safety Report 4837497-9 (Version None)
Quarter: 2005Q4

REPORT INFORMATION
  Report Type: 
  Country: None (occurrence: None)
  Receive Date: 20051123
  Receipt Date: 20051123
  Transmission Date: 20060501
  Serious: No
  Sender: FDA-Public Use
  Company Number: None

PATIENT
  Age: 70 Year
  Sex: Male
  Weight: 117 kg

DRUGS (15)
  1. WARFARIN SODIUM [Suspect]
     Indication: ATRIAL FIBRILLATION
     Dosage: ORAL
     Route: 048
  2. NORTRIPTYLINE HCL [Concomitant]
  3. GABAPENTIN [Concomitant]
  4. ROSUVASTATIN CA [Concomitant]
  5. POTASSIUM CHLORIDE [Concomitant]
  6. SPIRONOLACTONE [Concomitant]
  7. FUROSEMIDE [Concomitant]
  8. SERTRALINE HCL [Concomitant]
  9. TRIAMCINOLONE ACETONIDE [Concomitant]
  10. INSULIN NOVOLIN 70/30 (NPH/REG) [Concomitant]
  11. HUMULIN N [Concomitant]
  12. ASPIRIN [Concomitant]
  13. SYNTHROID [Concomitant]
  14. CARVEDILOL [Concomitant]
  15. NITROGLYCERIN [Concomitant]

REACTIONS (1)
  - INTERNATIONAL NORMALISED RATIO INCREASED [None]
